FAERS Safety Report 15634175 (Version 1)
Quarter: 2018Q4

REPORT INFORMATION
  Report Type: Report from Study
  Country: US (occurrence: US)
  Receive Date: 20181119
  Receipt Date: 20181119
  Transmission Date: 20190205
  Serious: No
  Sender: FDA-Public Use
  Company Number: PHEH2018US047997

PATIENT
  Sex: Male
  Weight: 22 kg

DRUGS (1)
  1. OMNITROPE [Suspect]
     Active Substance: SOMATROPIN
     Indication: GROWTH RETARDATION
     Dosage: 1.1 MG, QD
     Route: 058
     Dates: start: 201710

REACTIONS (2)
  - Bone pain [Unknown]
  - Ill-defined disorder [Unknown]
